FAERS Safety Report 5136580-0 (Version None)
Quarter: 2006Q4

REPORT INFORMATION
  Report Type: 
  Country: None (occurrence: None)
  Receive Date: 20061023
  Receipt Date: 20061009
  Transmission Date: 20070319
  Serious: Yes (Hospitalization, Other)
  Sender: FDA-Public Use
  Company Number: 2006124779

PATIENT
  Sex: Male

DRUGS (1)
  1. GABAPENTIN [Suspect]

REACTIONS (1)
  - ABNORMAL BEHAVIOUR [None]
